FAERS Safety Report 8171882-5 (Version None)
Quarter: 2012Q1

REPORT INFORMATION
  Report Type: 
  Country: None (occurrence: None)
  Receive Date: 20120113
  Receipt Date: 20110920
  Transmission Date: 20120608
  Serious: Yes (Other)
  Sender: FDA-Public Use
  Company Number: 2011S1000074

PATIENT
  Age: 33 Year
  Sex: Male

DRUGS (7)
  1. TYLENOL (CAPLET) [Concomitant]
  2. ZYRTEC [Concomitant]
  3. SOLU-MEDROL [Concomitant]
  4. KRYSTEXXA [Suspect]
     Indication: GOUT
     Dosage: X1;IV ; 8 MG;X1;IV
     Route: 042
     Dates: start: 20110830, end: 20110830
  5. KRYSTEXXA [Suspect]
     Indication: GOUT
     Dosage: X1;IV ; 8 MG;X1;IV
     Route: 042
     Dates: start: 20110816, end: 20110816
  6. INDOCIN /00003801/ [Concomitant]
  7. NORVASC [Concomitant]

REACTIONS (1)
  - INFUSION RELATED REACTION [None]
